FAERS Safety Report 24931635 (Version 1)
Quarter: 2025Q1

REPORT INFORMATION
  Report Type: Spontaneous
  Country: US (occurrence: US)
  Receive Date: 20250205
  Receipt Date: 20250205
  Transmission Date: 20250409
  Serious: No
  Sender: BLUEPRINT MEDICINES
  Company Number: US-Blueprint Medicines Corporation-2025-AER-00197

PATIENT
  Age: 80 Year
  Sex: Male

DRUGS (1)
  1. AYVAKIT [Suspect]
     Active Substance: AVAPRITINIB
     Indication: Mastocytoma
     Route: 065
     Dates: start: 20240621

REACTIONS (3)
  - Bronchitis [Unknown]
  - Rhinorrhoea [Unknown]
  - Ageusia [Unknown]

NARRATIVE: CASE EVENT DATE: 20241201
